FAERS Safety Report 13601629 (Version 1)
Quarter: 2017Q2

REPORT INFORMATION
  Report Type: Report from Study
  Country: US (occurrence: US)
  Receive Date: 20170601
  Receipt Date: 20170601
  Transmission Date: 20170830
  Serious: Yes (Other)
  Sender: FDA-Public Use
  Company Number: US-PFIZER INC-2017230610

PATIENT

DRUGS (7)
  1. OXALIPLATIN. [Suspect]
     Active Substance: OXALIPLATIN
     Indication: PANCREATIC CARCINOMA METASTATIC
     Dosage: 65 MG/M2, 2-H IV INFUSION, ON DAYS 1-3 OF A 2-WK CYCLE
     Route: 042
  2. LEUCOVORIN. [Suspect]
     Active Substance: LEUCOVORIN
     Indication: PANCREATIC CARCINOMA METASTATIC
     Dosage: 400 MG/M2, 90-MIN AFTER OXA, CONCURRENTLY WITH IRI, ON DAYS 1-3 OF A 2-WK CYCLE
     Route: 042
  3. FLUOROURACIL. [Suspect]
     Active Substance: FLUOROURACIL
     Indication: PANCREATIC CARCINOMA METASTATIC
     Dosage: 400 MG/M2, ON DAYS 1-3 OF A 2-WK CYCLE
     Route: 040
  4. CPI-613 [Suspect]
     Active Substance: INVESTIGATIONAL PRODUCT
     Indication: PANCREATIC CARCINOMA METASTATIC
     Dosage: 500 MG/M2, ON DAYS 1 AND 3 OF A 2-WEEK CYCLE
     Route: 042
  5. FLUOROURACIL. [Suspect]
     Active Substance: FLUOROURACIL
     Dosage: 2400 MG/M2, OVER 46 H CONTINUOUS IV INFUSION, ON DAYS 1-3 OF A 2-WK CYCLE
     Route: 041
  6. IRINOTECAN HCL [Suspect]
     Active Substance: IRINOTECAN HYDROCHLORIDE
     Indication: PANCREATIC CARCINOMA METASTATIC
     Dosage: 140 MG/M2, 90-MIN IV INFUSION, ON DAYS 1-3 OF A 2-WK CYCLE
     Route: 042
  7. PEGFILGRASTIM [Concomitant]
     Active Substance: PEGFILGRASTIM
     Indication: PROPHYLAXIS
     Dosage: ON DAY 4 (6 MG/0.6 ML)

REACTIONS (1)
  - Neutropenia [Unknown]
